FAERS Safety Report 17900976 (Version 1)
Quarter: 2020Q2

REPORT INFORMATION
  Report Type: Spontaneous
  Country: US (occurrence: US)
  Receive Date: 20200616
  Receipt Date: 20200616
  Transmission Date: 20200714
  Serious: No
  Sender: FDA-Public Use
  Company Number: US-SA-2020SA154409

PATIENT

DRUGS (7)
  1. LEFLUNOMIDE. [Concomitant]
     Active Substance: LEFLUNOMIDE
  2. ASPIRIN 81 [Concomitant]
     Active Substance: ASPIRIN
  3. FOLIC ACID. [Concomitant]
     Active Substance: FOLIC ACID
  4. EZETIMIBE. [Concomitant]
     Active Substance: EZETIMIBE
  5. METHOTREXATE. [Concomitant]
     Active Substance: METHOTREXATE
  6. KEVZARA [Suspect]
     Active Substance: SARILUMAB
     Indication: PRODUCT USED FOR UNKNOWN INDICATION
     Dosage: 200 MG, QOW
     Route: 058
     Dates: start: 202003
  7. VITAMIN A NOS [Concomitant]
     Active Substance: VITAMIN A

REACTIONS (4)
  - Eye swelling [Not Recovered/Not Resolved]
  - Oral mucosal blistering [Recovering/Resolving]
  - Rash [Not Recovered/Not Resolved]
  - Urinary tract infection [Not Recovered/Not Resolved]
